FAERS Safety Report 12675278 (Version 1)
Quarter: 2016Q3

REPORT INFORMATION
  Report Type: Spontaneous
  Country: FR (occurrence: FR)
  Receive Date: 20160823
  Receipt Date: 20160823
  Transmission Date: 20161109
  Serious: Yes (Hospitalization)
  Sender: FDA-Public Use
  Company Number: FR-ASTRAZENECA-2016SE89927

PATIENT
  Age: 42 Year
  Sex: Female

DRUGS (4)
  1. BROMAZEPAM [Concomitant]
     Active Substance: BROMAZEPAM
  2. XEROQUEL [Suspect]
     Active Substance: QUETIAPINE FUMARATE
     Indication: DELUSIONAL DISORDER, UNSPECIFIED TYPE
     Route: 048
     Dates: start: 20160729, end: 20160730
  3. SERTRALINE [Concomitant]
     Active Substance: SERTRALINE HYDROCHLORIDE
  4. XEROQUEL [Suspect]
     Active Substance: QUETIAPINE FUMARATE
     Indication: DELUSIONAL DISORDER, UNSPECIFIED TYPE
     Route: 048
     Dates: start: 20160730

REACTIONS (3)
  - Asthenia [Recovered/Resolved]
  - Malaise [Recovered/Resolved]
  - Hypotension [Recovered/Resolved]

NARRATIVE: CASE EVENT DATE: 20160730
